FAERS Safety Report 16320832 (Version 1)
Quarter: 2019Q2

REPORT INFORMATION
  Report Type: Spontaneous
  Country: US (occurrence: US)
  Receive Date: 20190516
  Receipt Date: 20190516
  Transmission Date: 20190711
  Serious: No
  Sender: FDA-Public Use
  Company Number: US-ASTRAZENECA-2019SE61113

PATIENT
  Age: 858 Month
  Sex: Female

DRUGS (1)
  1. TAGRISSO [Suspect]
     Active Substance: OSIMERTINIB
     Route: 048

REACTIONS (9)
  - Photophobia [Unknown]
  - Keratopathy [Unknown]
  - Arrhythmia [Unknown]
  - Sinus congestion [Unknown]
  - Vision blurred [Unknown]
  - Cornea verticillata [Unknown]
  - Supraventricular tachycardia [Unknown]
  - Fatigue [Unknown]
  - Gastrointestinal disorder [Unknown]

NARRATIVE: CASE EVENT DATE: 201901
